FAERS Safety Report 7206624-0 (Version None)
Quarter: 2011Q1

REPORT INFORMATION
  Report Type: 
  Country: None (occurrence: None)
  Receive Date: 20110103
  Receipt Date: 20101223
  Transmission Date: 20110831
  Serious: Yes (Hospitalization)
  Sender: FDA-Public Use
  Company Number: BE-JNJFOC-20101208314

PATIENT
  Age: 42 Year
  Sex: Male

DRUGS (2)
  1. REMICADE [Suspect]
     Indication: CROHN'S DISEASE
     Route: 042
  2. ANTI-HYPERCHOLESTEROLAEMIA [Concomitant]
     Indication: HYPERCHOLESTEROLAEMIA

REACTIONS (1)
  - ARTERIOSCLEROSIS [None]
